FAERS Safety Report 19868271 (Version 1)
Quarter: 2021Q3

REPORT INFORMATION
  Report Type: Spontaneous
  Country: US (occurrence: US)
  Receive Date: 20210921
  Receipt Date: 20210921
  Transmission Date: 20211014
  Serious: No
  Sender: FDA-Public Use
  Company Number: US-BRAINTREE LABORATORIES, INC.-2021BTE00644

PATIENT
  Sex: Male

DRUGS (3)
  1. UNSPECIFIED ENEMA [Suspect]
     Active Substance: UNSPECIFIED INGREDIENT
     Dosage: UNK, ONCE
     Dates: start: 20210727, end: 20210727
  2. SUPREP BOWEL PREP [Suspect]
     Active Substance: MAGNESIUM SULFATE\POTASSIUM SULFATE\SODIUM SULFATE
     Dosage: 1 X 6 OZ. BOTTLE, 1X
     Dates: start: 20210727
  3. MAGNESIUM CITRATE. [Suspect]
     Active Substance: MAGNESIUM CITRATE
     Dosage: UNK, TWICE
     Route: 048
     Dates: start: 20210726, end: 20210727

REACTIONS (4)
  - Abdominal pain [Not Recovered/Not Resolved]
  - Abdominal distension [Not Recovered/Not Resolved]
  - Wrong technique in product usage process [Unknown]
  - Nausea [Not Recovered/Not Resolved]

NARRATIVE: CASE EVENT DATE: 20210727
